FAERS Safety Report 7978480-4 (Version None)
Quarter: 2011Q4

REPORT INFORMATION
  Report Type: 
  Country: None (occurrence: None)
  Receive Date: 20111207
  Receipt Date: 20111205
  Transmission Date: 20120403
  Serious: Yes (Hospitalization)
  Sender: FDA-Public Use
  Company Number: 2010SP055557

PATIENT
  Age: 67 Year
  Sex: Female
  Weight: 64 kg

DRUGS (6)
  1. DOMPERIDONE [Concomitant]
  2. SENNA ALEXANDRINA [Concomitant]
  3. LACTULOSE [Concomitant]
  4. TEMOZOLOMIDE [Suspect]
     Indication: OVARIAN CANCER
     Dosage: 345 MG;QD;PO
     Route: 048
     Dates: start: 20100812
  5. LACTULOSE [Concomitant]
  6. ABT-888 (INVESTIGATIONAL DRUG) [Suspect]
     Indication: OVARIAN CANCER
     Dosage: 400 MG;BID;PO
     Route: 048
     Dates: start: 20100812

REACTIONS (8)
  - FATIGUE [None]
  - MUSCLE CONTRACTURE [None]
  - ANAEMIA [None]
  - LETHARGY [None]
  - THROMBOCYTOPENIA [None]
  - PERIPHERAL SENSORY NEUROPATHY [None]
  - FEBRILE NEUTROPENIA [None]
  - BONE MARROW FAILURE [None]
